FAERS Safety Report 22047679 (Version 1)
Quarter: 2023Q1

REPORT INFORMATION
  Report Type: Other
  Country: CA (occurrence: CA)
  Receive Date: 20230301
  Receipt Date: 20230301
  Transmission Date: 20230418
  Serious: Yes (Other)
  Sender: FDA-Public Use
  Company Number: CA-GLENMARK PHARMACEUTICALS-2023GMK079233

PATIENT

DRUGS (29)
  1. EZETIMIBE [Suspect]
     Active Substance: EZETIMIBE
     Indication: Xanthoma
     Dosage: 10 MILLIGRAM
     Route: 065
  2. EZETIMIBE [Suspect]
     Active Substance: EZETIMIBE
     Indication: Type IIa hyperlipidaemia
     Dosage: 10 MILLIGRAM
     Route: 065
  3. EZETIMIBE [Suspect]
     Active Substance: EZETIMIBE
     Dosage: UNK
     Route: 065
  4. EZETIMIBE [Suspect]
     Active Substance: EZETIMIBE
     Dosage: UNK
     Route: 065
  5. ATORVASTATIN CALCIUM [Suspect]
     Active Substance: ATORVASTATIN CALCIUM
     Indication: Xanthoma
     Dosage: UNK
     Route: 065
  6. ATORVASTATIN CALCIUM [Suspect]
     Active Substance: ATORVASTATIN CALCIUM
     Indication: Type IIa hyperlipidaemia
     Dosage: UNK
     Route: 065
  7. ATORVASTATIN CALCIUM [Suspect]
     Active Substance: ATORVASTATIN CALCIUM
     Dosage: UNK
     Route: 065
  8. ATORVASTATIN CALCIUM [Suspect]
     Active Substance: ATORVASTATIN CALCIUM
     Dosage: UNK
     Route: 065
  9. ATORVASTATIN CALCIUM [Suspect]
     Active Substance: ATORVASTATIN CALCIUM
     Dosage: UNK
     Route: 065
  10. ATORVASTATIN CALCIUM [Suspect]
     Active Substance: ATORVASTATIN CALCIUM
     Dosage: UNK
     Route: 065
  11. EVOLOCUMAB [Suspect]
     Active Substance: EVOLOCUMAB
     Indication: Xanthoma
     Dosage: 140 MILLIGRAM
     Route: 058
  12. EVOLOCUMAB [Suspect]
     Active Substance: EVOLOCUMAB
     Indication: Type IIa hyperlipidaemia
     Dosage: 140 MILLIGRAM
     Route: 058
  13. COLESEVELAM HYDROCHLORIDE [Suspect]
     Active Substance: COLESEVELAM HYDROCHLORIDE
     Indication: Xanthoma
     Dosage: UNK
     Route: 065
  14. COLESEVELAM HYDROCHLORIDE [Suspect]
     Active Substance: COLESEVELAM HYDROCHLORIDE
     Indication: Type IIa hyperlipidaemia
     Dosage: UNK
     Route: 065
  15. COLESEVELAM HYDROCHLORIDE [Suspect]
     Active Substance: COLESEVELAM HYDROCHLORIDE
     Dosage: UNK
     Route: 065
  16. COLESEVELAM HYDROCHLORIDE [Suspect]
     Active Substance: COLESEVELAM HYDROCHLORIDE
     Indication: Xanthoma
     Dosage: UNK
     Route: 065
  17. COLESEVELAM HYDROCHLORIDE [Suspect]
     Active Substance: COLESEVELAM HYDROCHLORIDE
     Indication: Type IIa hyperlipidaemia
  18. PRAVASTATIN [Suspect]
     Active Substance: PRAVASTATIN
     Indication: Xanthoma
     Dosage: UNK
     Route: 065
  19. PRAVASTATIN [Suspect]
     Active Substance: PRAVASTATIN
     Indication: Type IIa hyperlipidaemia
     Dosage: UNK
     Route: 065
  20. PRAVASTATIN SODIUM [Suspect]
     Active Substance: PRAVASTATIN SODIUM
     Indication: Xanthoma
     Dosage: 10 MILLIGRAM
     Route: 065
  21. PRAVASTATIN SODIUM [Suspect]
     Active Substance: PRAVASTATIN SODIUM
     Indication: Type IIa hyperlipidaemia
  22. REPATHA [Suspect]
     Active Substance: EVOLOCUMAB
     Indication: Xanthoma
     Dosage: 1 ML SINGLE USE PREFILLED SYRINGE AND AUTOINJECTOR
     Route: 058
  23. REPATHA [Suspect]
     Active Substance: EVOLOCUMAB
     Indication: Type IIa hyperlipidaemia
  24. REPATHA [Suspect]
     Active Substance: EVOLOCUMAB
     Indication: Xanthoma
     Dosage: 1 ML SINGLE USE PREFILLED SYRINGE AND AUTOINJECTOR
     Route: 065
  25. REPATHA [Suspect]
     Active Substance: EVOLOCUMAB
     Indication: Type IIa hyperlipidaemia
  26. ROSUVASTATIN CALCIUM [Suspect]
     Active Substance: ROSUVASTATIN CALCIUM
     Indication: Xanthoma
     Dosage: 10 MILLIGRAM
     Route: 048
  27. ROSUVASTATIN CALCIUM [Suspect]
     Active Substance: ROSUVASTATIN CALCIUM
     Indication: Type IIa hyperlipidaemia
     Dosage: 10 MILLIGRAM
     Route: 048
  28. ROSUVASTATIN CALCIUM [Suspect]
     Active Substance: ROSUVASTATIN CALCIUM
     Indication: Xanthoma
     Dosage: 10 MILLIGRAM
     Route: 048
  29. ROSUVASTATIN CALCIUM [Suspect]
     Active Substance: ROSUVASTATIN CALCIUM
     Indication: Type IIa hyperlipidaemia

REACTIONS (2)
  - Drug intolerance [Unknown]
  - Drug ineffective [Unknown]
